FAERS Safety Report 5013932-0 (Version None)
Quarter: 2006Q2

REPORT INFORMATION
  Report Type: 
  Country: None (occurrence: None)
  Receive Date: 20060525
  Receipt Date: 20060520
  Transmission Date: 20061013
  Serious: Yes (Death)
  Sender: FDA-Public Use
  Company Number: 223150

PATIENT
  Age: 32 Year
  Sex: Female

DRUGS (5)
  1. MABTHERA [Suspect]
     Dosage: 600 MG, UNK, INTRAVENOUS
     Route: 042
     Dates: start: 20051121, end: 20051121
  2. CYCLOPHOSPHAMIDE [Suspect]
     Dosage: 1200 MG, UNK, INTRAVENOUS
     Route: 042
     Dates: start: 20051121, end: 20051121
  3. DOXORUBICIN HCL [Suspect]
     Dosage: UNK
     Route: 065
     Dates: start: 20051121, end: 20051121
  4. VINCRISTINE [Suspect]
     Dosage: 2 MG, 1/WEEK, INTRAVENOUS
     Route: 042
     Dates: start: 20051024, end: 20051121
  5. PREDNISONE TAB [Suspect]
     Dosage: UNK
     Route: 065
     Dates: start: 20051121, end: 20051121

REACTIONS (4)
  - COUGH [None]
  - DYSPNOEA [None]
  - FATIGUE [None]
  - PYREXIA [None]
